FAERS Safety Report 23841297 (Version 1)
Quarter: 2024Q2

REPORT INFORMATION
  Report Type: Spontaneous
  Country: US (occurrence: US)
  Receive Date: 20240510
  Receipt Date: 20240510
  Transmission Date: 20240716
  Serious: No
  Sender: FDA-Public Use
  Company Number: US-ASTELLAS-2024US005528

PATIENT
  Age: 93 Year
  Sex: Female

DRUGS (10)
  1. IZERVAY [Suspect]
     Active Substance: AVACINCAPTAD PEGOL SODIUM
     Indication: Dry age-related macular degeneration
     Dosage: 2 MG, MONTHLY (X1) (LEFT EYE)
     Route: 050
     Dates: start: 20231030, end: 20231030
  2. IZERVAY [Suspect]
     Active Substance: AVACINCAPTAD PEGOL SODIUM
     Indication: Dry age-related macular degeneration
     Dosage: 2 MG, MONTHLY (X1) (LEFT EYE)
     Route: 050
     Dates: start: 20231030, end: 20231030
  3. IZERVAY [Suspect]
     Active Substance: AVACINCAPTAD PEGOL SODIUM
     Indication: Dry age-related macular degeneration
     Dosage: 2 MG, MONTHLY (X1) (LEFT EYE)
     Route: 050
     Dates: start: 20231030, end: 20231030
  4. IZERVAY [Suspect]
     Active Substance: AVACINCAPTAD PEGOL SODIUM
     Indication: Dry age-related macular degeneration
     Dosage: 2 MG, MONTHLY (X1) (LEFT EYE)
     Route: 050
     Dates: start: 20231030, end: 20231030
  5. IZERVAY [Suspect]
     Active Substance: AVACINCAPTAD PEGOL SODIUM
     Indication: Dry age-related macular degeneration
     Dosage: 2 MG, MONTHLY (X1) (LEFT EYE)
     Route: 050
     Dates: start: 20231030, end: 20231030
  6. IZERVAY [Suspect]
     Active Substance: AVACINCAPTAD PEGOL SODIUM
     Dosage: 2 MG, MONTHLY (X1) (LEFT EYE)
     Route: 050
     Dates: start: 20231127, end: 20231127
  7. IZERVAY [Suspect]
     Active Substance: AVACINCAPTAD PEGOL SODIUM
     Dosage: 2 MG, MONTHLY (X1) (LEFT EYE)
     Route: 050
     Dates: start: 20231127, end: 20231127
  8. IZERVAY [Suspect]
     Active Substance: AVACINCAPTAD PEGOL SODIUM
     Dosage: 2 MG, MONTHLY (X1) (LEFT EYE)
     Route: 050
     Dates: start: 20231127, end: 20231127
  9. IZERVAY [Suspect]
     Active Substance: AVACINCAPTAD PEGOL SODIUM
     Dosage: 2 MG, MONTHLY (X1) (LEFT EYE)
     Route: 050
     Dates: start: 20231127, end: 20231127
  10. IZERVAY [Suspect]
     Active Substance: AVACINCAPTAD PEGOL SODIUM
     Dosage: 2 MG, MONTHLY (X1) (LEFT EYE)
     Route: 050
     Dates: start: 20231127, end: 20231127

REACTIONS (1)
  - Vitreous floaters [Recovered/Resolved]

NARRATIVE: CASE EVENT DATE: 20231030
